FAERS Safety Report 9370113 (Version 1)
Quarter: 2013Q2

REPORT INFORMATION
  Report Type: Spontaneous
  Country: GB (occurrence: GB)
  Receive Date: 20130626
  Receipt Date: 20130626
  Transmission Date: 20140414
  Serious: Yes (Hospitalization)
  Sender: FDA-Public Use
  Company Number: PHHY2013GB063901

PATIENT
  Age: 75 Year
  Sex: Male
  Weight: 83 kg

DRUGS (11)
  1. AZATHIOPRINE [Suspect]
     Indication: MYASTHENIA GRAVIS
     Dosage: 200 MG, UNK
     Route: 048
     Dates: start: 2012
  2. PREDNISOLONE [Suspect]
     Indication: MYASTHENIA GRAVIS
     Dosage: 10 MG, UNK
     Dates: start: 2012
  3. OMEPRAZOLE [Concomitant]
  4. CITALOPRAM [Concomitant]
  5. SIMVASTATIN [Concomitant]
  6. RAMIPRIL [Concomitant]
  7. ASPIRIN [Concomitant]
  8. PYRIDOSTIGMINE [Concomitant]
  9. ALENDRONIC ACID [Concomitant]
  10. FLUTICASONE [Concomitant]
  11. SALMETEROL [Concomitant]
     Route: 055

REACTIONS (1)
  - Anogenital warts [Unknown]
